FAERS Safety Report 4704035-0 (Version None)
Quarter: 2005Q2

REPORT INFORMATION
  Report Type: 
  Country: None (occurrence: None)
  Receive Date: 20050629
  Receipt Date: 20020204
  Transmission Date: 20051028
  Serious: No
  Sender: FDA-Public Use
  Company Number: 3311

PATIENT
  Age: 5 Year
  Sex: Male

DRUGS (5)
  1. ACYCLOVIR [Suspect]
     Indication: ENCEPHALITIS VIRAL
     Dosage: 10 MG/KG TID
     Route: 042
     Dates: start: 19941020, end: 19941027
  2. ACYCLOVIR [Suspect]
     Indication: ENCEPHALITIS VIRAL
     Dosage: 10 MG/KG TID
     Route: 042
     Dates: start: 19941115, end: 19941124
  3. GLYCEROL 2.6% [Concomitant]
  4. PHENYTOIN [Concomitant]
  5. PHENOBARBITAL [Concomitant]

REACTIONS (5)
  - AGITATION [None]
  - CONFUSIONAL STATE [None]
  - INSOMNIA [None]
  - NEUROTOXICITY [None]
  - PSYCHIATRIC SYMPTOM [None]
